FAERS Safety Report 9693359 (Version 2)
Quarter: 2014Q2

REPORT INFORMATION
  Report Type: Spontaneous
  Country: AU (occurrence: AU)
  Receive Date: 20131118
  Receipt Date: 20140410
  Transmission Date: 20141212
  Serious: Yes (Other)
  Sender: FDA-Public Use
  Company Number: AU-ABBVIE-13P-008-1157527-00

PATIENT
  Age: 28 Day
  Sex: Female

DRUGS (4)
  1. EPILIM [Suspect]
     Indication: MATERNAL EXPOSURE TIMING UNSPECIFIED
     Route: 064
  2. CLOZARIL [Suspect]
     Indication: MATERNAL EXPOSURE TIMING UNSPECIFIED
     Route: 064
  3. ZUCLOPENTHIXOL DECANOATE [Suspect]
     Indication: MATERNAL EXPOSURE TIMING UNSPECIFIED
     Route: 064
  4. ZYPREXA [Suspect]
     Indication: MATERNAL EXPOSURE TIMING UNSPECIFIED
     Route: 064

REACTIONS (12)
  - Cerebral haemorrhage neonatal [Unknown]
  - Congenital foot malformation [Unknown]
  - Convulsion [Unknown]
  - Hepatosplenomegaly neonatal [Unknown]
  - Hyperbilirubinaemia [Unknown]
  - Hypoxia [Unknown]
  - Apnoea neonatal [Unknown]
  - Vomiting [Unknown]
  - Weight decrease neonatal [Unknown]
  - Hyperammonaemia [Unknown]
  - Foetal exposure during pregnancy [Unknown]
  - Food intolerance [Unknown]
